FAERS Safety Report 4315240-X (Version None)
Quarter: 2004Q1

REPORT INFORMATION
  Report Type: 
  Country: None (occurrence: None)
  Receive Date: 20040309
  Receipt Date: 20040226
  Transmission Date: 20041129
  Serious: Yes (Disabling)
  Sender: FDA-Public Use
  Company Number: ES-JNJFOC-20040300249

PATIENT
  Sex: Female

DRUGS (3)
  1. REMICADE [Suspect]
     Indication: CROHN'S DISEASE
     Dosage: 5 MG/KG, INTRAVENOUS
     Route: 042
  2. CORTICOSTEROID (CORTICOSTEROIDS) [Suspect]
     Indication: CROHN'S DISEASE
  3. IMMUNOSUPRESSANT (IMMUNOSUPPRESSIVE AGENTS) [Concomitant]

REACTIONS (7)
  - ABASIA [None]
  - ASTHENIA [None]
  - DIFFICULTY IN WALKING [None]
  - MUSCLE DISORDER [None]
  - MYALGIA [None]
  - MYOPATHY [None]
  - OEDEMA [None]
